FAERS Safety Report 9337014 (Version 2)
Quarter: 2014Q2

REPORT INFORMATION
  Report Type: Spontaneous
  Country: US (occurrence: US)
  Receive Date: 20130607
  Receipt Date: 20140430
  Transmission Date: 20141212
  Serious: Yes (Hospitalization)
  Sender: FDA-Public Use
  Company Number: US-B.I. PHARMACEUTICALS,INC./RIDGEFIELD-2013-BI-16090BP

PATIENT
  Age: 74 Year
  Sex: Male
  Weight: 72.57 kg

DRUGS (10)
  1. PRADAXA [Suspect]
     Indication: ATRIAL FIBRILLATION
     Dosage: 300 MG
     Route: 065
     Dates: start: 20110629, end: 20120222
  2. ARICEPT [Concomitant]
     Route: 065
  3. ASPIRIN [Concomitant]
     Dosage: 81 MG
     Route: 065
  4. TOPROL [Concomitant]
     Dosage: 25 MG
     Route: 065
  5. HYTRIN [Concomitant]
     Dosage: 5 MG
     Route: 065
  6. NAMEMDA [Concomitant]
     Dosage: 20 MG
     Route: 065
  7. MOXIFLOXACIN EYEDROPS [Concomitant]
     Route: 065
  8. ACTOPLUS MET [Concomitant]
     Route: 065
  9. SITAGLIPTIN/METFORMIN [Concomitant]
     Route: 065
  10. GLIPIZIDE [Concomitant]
     Route: 065

REACTIONS (3)
  - Upper gastrointestinal haemorrhage [Recovered/Resolved]
  - Coagulopathy [Recovered/Resolved]
  - Haemorrhagic anaemia [Unknown]
